FAERS Safety Report 7268282-9 (Version None)
Quarter: 2011Q1

REPORT INFORMATION
  Report Type: 
  Country: None (occurrence: None)
  Receive Date: 20110201
  Receipt Date: 20110125
  Transmission Date: 20110831
  Serious: No
  Sender: FDA-Public Use
  Company Number: US-PFIZER INC-2011018365

PATIENT

DRUGS (1)
  1. GEMTUZUMAB OZOGAMICIN [Suspect]
     Indication: NEOPLASM
     Dosage: UNK

REACTIONS (2)
  - DISEASE PROGRESSION [None]
  - NEOPLASM RECURRENCE [None]
